FAERS Safety Report 18230581 (Version 2)
Quarter: 2020Q4

REPORT INFORMATION
  Report Type: Other
  Country: FR (occurrence: FR)
  Receive Date: 20200903
  Receipt Date: 20201204
  Transmission Date: 20210113
  Serious: Yes (Other)
  Sender: FDA-Public Use
  Company Number: FR-ROCHE-2668122

PATIENT
  Age: 73 Year
  Sex: Female
  Weight: 73 kg

DRUGS (18)
  1. BENDAMUSTINE [Suspect]
     Active Substance: BENDAMUSTINE
     Indication: DIFFUSE LARGE B-CELL LYMPHOMA
     Dosage: C1
     Route: 042
     Dates: start: 20200702, end: 20200702
  2. RITUXIMAB. [Suspect]
     Active Substance: RITUXIMAB
     Indication: DIFFUSE LARGE B-CELL LYMPHOMA
     Dosage: C1
     Route: 042
     Dates: start: 20200702, end: 20200702
  3. RITUXIMAB. [Suspect]
     Active Substance: RITUXIMAB
     Dosage: C2
     Route: 042
     Dates: start: 20201001, end: 20201001
  4. BACTRIM [Concomitant]
     Active Substance: SULFAMETHOXAZOLE\TRIMETHOPRIM
     Route: 048
  5. BENDAMUSTINE [Suspect]
     Active Substance: BENDAMUSTINE
     Dosage: C2
     Route: 042
     Dates: start: 20200728, end: 20200728
  6. BENDAMUSTINE [Suspect]
     Active Substance: BENDAMUSTINE
     Dosage: C2
     Route: 042
     Dates: start: 20200815, end: 20200815
  7. ZELITREX [Concomitant]
     Active Substance: VALACYCLOVIR HYDROCHLORIDE
     Route: 048
  8. POLATUZUMAB VEDOTIN. [Suspect]
     Active Substance: POLATUZUMAB VEDOTIN
     Indication: DIFFUSE LARGE B-CELL LYMPHOMA
     Dosage: C1
     Route: 042
     Dates: start: 20200702, end: 20200702
  9. POLATUZUMAB VEDOTIN. [Suspect]
     Active Substance: POLATUZUMAB VEDOTIN
     Dosage: CYCLE 4
     Route: 042
     Dates: start: 20200910, end: 20200910
  10. POLATUZUMAB VEDOTIN. [Suspect]
     Active Substance: POLATUZUMAB VEDOTIN
     Dosage: CYCLE 5
     Route: 042
     Dates: start: 20201001, end: 20201001
  11. RITUXIMAB. [Suspect]
     Active Substance: RITUXIMAB
     Dosage: C2
     Route: 042
     Dates: start: 20200910, end: 20200910
  12. RITUXIMAB. [Suspect]
     Active Substance: RITUXIMAB
     Dosage: C2
     Route: 042
     Dates: start: 20200728, end: 20200728
  13. SKENAN [Concomitant]
     Active Substance: MORPHINE SULFATE
     Route: 048
     Dates: start: 20200702, end: 20200728
  14. ACTISKENAN [Concomitant]
     Active Substance: MORPHINE SULFATE
     Route: 048
     Dates: start: 20200702, end: 20200728
  15. POLATUZUMAB VEDOTIN. [Suspect]
     Active Substance: POLATUZUMAB VEDOTIN
     Dosage: C2
     Route: 042
     Dates: start: 20200814, end: 20200814
  16. FOLINORAL [Concomitant]
     Active Substance: LEUCOVORIN CALCIUM
     Route: 048
  17. POLATUZUMAB VEDOTIN. [Suspect]
     Active Substance: POLATUZUMAB VEDOTIN
     Dosage: C2
     Route: 042
     Dates: start: 20200728, end: 20200728
  18. RITUXIMAB. [Suspect]
     Active Substance: RITUXIMAB
     Dosage: C2
     Route: 042
     Dates: start: 20200814, end: 20200814

REACTIONS (4)
  - Pyrexia [Recovered/Resolved]
  - Hypotension [Recovered/Resolved]
  - Oxygen saturation decreased [Recovered/Resolved]
  - Hypersensitivity [Unknown]

NARRATIVE: CASE EVENT DATE: 20200728
